FAERS Safety Report 7913216-4 (Version None)
Quarter: 2011Q4

REPORT INFORMATION
  Report Type: 
  Country: None (occurrence: None)
  Receive Date: 20111114
  Receipt Date: 20111104
  Transmission Date: 20120403
  Serious: Yes (Hospitalization)
  Sender: FDA-Public Use
  Company Number: PE-ASTRAZENECA-2011SE60449

PATIENT
  Age: 93 Year
  Sex: Male

DRUGS (2)
  1. ISOSORBIDE DINITRATE [Concomitant]
  2. CRESTOR [Suspect]
     Indication: ARTERIAL INSUFFICIENCY
     Route: 048
     Dates: start: 20110914

REACTIONS (3)
  - RENAL FAILURE ACUTE [None]
  - ARTERIAL THROMBOSIS LIMB [None]
  - DRUG PRESCRIBING ERROR [None]
